FAERS Safety Report 11433496 (Version 1)
Quarter: 2015Q3

REPORT INFORMATION
  Report Type: Spontaneous
  Country: DE (occurrence: DE)
  Receive Date: 20150831
  Receipt Date: 20150831
  Transmission Date: 20151125
  Serious: Yes (Hospitalization, Disabling)
  Sender: FDA-Public Use
  Company Number: DE-UCBSA-2015027103

PATIENT
  Age: 67 Year
  Sex: Male
  Weight: 77 kg

DRUGS (1)
  1. NEUPRO [Suspect]
     Active Substance: ROTIGOTINE
     Indication: PARKINSON^S DISEASE
     Dosage: DAILY DOSE: 12 MG, UNK
     Route: 062

REACTIONS (2)
  - Avulsion fracture [Not Recovered/Not Resolved]
  - Camptocormia [Not Recovered/Not Resolved]

NARRATIVE: CASE EVENT DATE: 20141024
